FAERS Safety Report 10751520 (Version 1)
Quarter: 2015Q1

REPORT INFORMATION
  Report Type: Spontaneous
  Country: US (occurrence: None)
  Receive Date: 20150129
  Receipt Date: 20150129
  Transmission Date: 20150721
  Serious: Yes (Life-Threatening, Hospitalization, Disabling)
  Sender: FDA-Public Use
  Company Number: None

PATIENT
  Age: 90 Year
  Sex: Female
  Weight: 48 kg

DRUGS (9)
  1. CLARITIN REDITABS [Concomitant]
     Active Substance: LORATADINE
  2. LANOXIN [Concomitant]
     Active Substance: DIGOXIN
  3. VITAMIN C [Concomitant]
     Active Substance: ASCORBIC ACID
  4. COUMADIN [Suspect]
     Active Substance: WARFARIN SODIUM
     Indication: ATRIAL FIBRILLATION
     Dosage: 2 PILLS ALT. WITH 1.5 PILLS, QHS/BEDTIME, ORAL
     Route: 048
     Dates: start: 20090715, end: 20140814
  5. ACETAMINOPHEN AND CODEINE [Concomitant]
     Active Substance: ACETAMINOPHEN\CODEINE PHOSPHATE
  6. MULTIVITAMIN [Concomitant]
     Active Substance: VITAMINS
  7. CARBIDOPA/LEVODOPA [Concomitant]
     Active Substance: CARBIDOPA\LEVODOPA
  8. NITROGLYCERIN. [Concomitant]
     Active Substance: NITROGLYCERIN
  9. DICLOFENAC SODIUM. [Concomitant]
     Active Substance: DICLOFENAC SODIUM

REACTIONS (3)
  - Haemorrhage [None]
  - Subdural haematoma [None]
  - Fall [None]

NARRATIVE: CASE EVENT DATE: 20140814
